FAERS Safety Report 6495773-0 (Version None)
Quarter: 2009Q4

REPORT INFORMATION
  Report Type: 
  Country: None (occurrence: None)
  Receive Date: 20091214
  Receipt Date: 20090819
  Transmission Date: 20100525
  Serious: Yes (Other)
  Sender: FDA-Public Use
  Company Number: US-BRISTOL-MYERS SQUIBB COMPANY-14738082

PATIENT
  Age: 21 Year
  Sex: Female
  Weight: 82 kg

DRUGS (6)
  1. ABILIFY [Suspect]
     Indication: MOOD SWINGS
     Dosage: DOSE STARTED AT 15 MG,DECREASED TO 5MG(BID) IN APRIL
     Route: 048
     Dates: start: 20051220
  2. ABILIFY [Suspect]
     Indication: AGITATION
     Dosage: DOSE STARTED AT 15 MG,DECREASED TO 5MG(BID) IN APRIL
     Route: 048
     Dates: start: 20051220
  3. CARBAMAZEPINE [Concomitant]
  4. ZOLOFT [Concomitant]
  5. LEVOXYL [Concomitant]
  6. CLONAZEPAM [Concomitant]

REACTIONS (2)
  - CONVULSION [None]
  - HEART RATE INCREASED [None]
